FAERS Safety Report 15914564 (Version 1)
Quarter: 2019Q1

REPORT INFORMATION
  Report Type: Spontaneous
  Country: US (occurrence: US)
  Receive Date: 20190204
  Receipt Date: 20190204
  Transmission Date: 20190417
  Serious: No
  Sender: FDA-Public Use
  Company Number: US-ABBVIE-18K-163-2444790-00

PATIENT
  Age: 30 Year
  Sex: Male
  Weight: 67.19 kg

DRUGS (1)
  1. HUMIRA [Suspect]
     Active Substance: ADALIMUMAB
     Indication: PSORIASIS
     Route: 058
     Dates: start: 2016

REACTIONS (6)
  - Device issue [Recovered/Resolved]
  - Underweight [Unknown]
  - Injection site swelling [Not Recovered/Not Resolved]
  - Fat tissue decreased [Unknown]
  - Incorrect dose administered [Unknown]
  - Injection site erythema [Not Recovered/Not Resolved]

NARRATIVE: CASE EVENT DATE: 20180802
